FAERS Safety Report 13425352 (Version 14)
Quarter: 2023Q1

REPORT INFORMATION
  Report Type: Report from Study
  Country: US (occurrence: US)
  Receive Date: 20170411
  Receipt Date: 20230330
  Transmission Date: 20230418
  Serious: Yes (Hospitalization, Other)
  Sender: FDA-Public Use
  Company Number: US-ACADIA PHARMACEUTICALS INC.-ACA-2017-002878

PATIENT
  Age: 63 Year
  Sex: Female

DRUGS (37)
  1. NUPLAZID [Suspect]
     Active Substance: PIMAVANSERIN TARTRATE
     Indication: Parkinson^s disease
     Dosage: 34 MILLIGRAM, QD
     Route: 048
     Dates: start: 20210921
  2. NUPLAZID [Suspect]
     Active Substance: PIMAVANSERIN TARTRATE
     Dosage: 34 MILLIGRAM, QD
     Route: 048
  3. NUPLAZID [Suspect]
     Active Substance: PIMAVANSERIN TARTRATE
     Indication: Parkinson^s disease
     Dosage: 34 MG, QD
     Route: 048
     Dates: start: 20170308
  4. NUPLAZID [Suspect]
     Active Substance: PIMAVANSERIN TARTRATE
     Dosage: 34 MILLIGRAM, QD
     Route: 048
     Dates: start: 20170310, end: 201712
  5. AMOXICILLIN [Suspect]
     Active Substance: AMOXICILLIN
  6. TRAZODONE [Concomitant]
     Active Substance: TRAZODONE HYDROCHLORIDE
  7. POTASSIUM CHLORIDE [Concomitant]
     Active Substance: POTASSIUM CHLORIDE
  8. NYSTOP [Concomitant]
     Active Substance: NYSTATIN
  9. LOPERAMIDE [Concomitant]
     Active Substance: LOPERAMIDE
  10. LYRICA [Concomitant]
     Active Substance: PREGABALIN
     Dosage: 150 MG, UNK
  11. SUMATRIPTAN [Concomitant]
     Active Substance: SUMATRIPTAN
     Dosage: 25 MG, UNK
  12. MECLIZINE [Concomitant]
     Active Substance: MECLIZINE HYDROCHLORIDE
  13. TIZANIDINE [Concomitant]
     Active Substance: TIZANIDINE
     Dosage: 2 MG, UNK
  14. FLOVENT [Concomitant]
     Active Substance: FLUTICASONE PROPIONATE
  15. CLONAZEPAM [Concomitant]
     Active Substance: CLONAZEPAM
  16. PRAZOSIN [Concomitant]
     Active Substance: PRAZOSIN
     Dosage: 2 MG, UNK
  17. LAMOTRIGINE [Concomitant]
     Active Substance: LAMOTRIGINE
     Dosage: 150 MG, UNK
  18. METFORMIN [Concomitant]
     Active Substance: METFORMIN HYDROCHLORIDE
     Dosage: 500 AND 1000 MG TAB
  19. TRAMADOL [Concomitant]
     Active Substance: TRAMADOL
  20. PREDNISONE [Concomitant]
     Active Substance: PREDNISONE
  21. VALACYCLOVIR [Concomitant]
     Active Substance: VALACYCLOVIR HYDROCHLORIDE
  22. OMEPRAZOLE [Concomitant]
     Active Substance: OMEPRAZOLE
     Dosage: 40 MG, UNK
  23. RANITIDINE [Concomitant]
     Active Substance: RANITIDINE
     Dosage: 150 MG, UNK
  24. ATORVASTATIN [Concomitant]
     Active Substance: ATORVASTATIN
     Dosage: 40 MG, UNK
  25. CETIRIZINE [Concomitant]
     Active Substance: CETIRIZINE HYDROCHLORIDE
  26. DULOXETINE [Concomitant]
     Active Substance: DULOXETINE
  27. SENNA [Concomitant]
     Active Substance: SENNA LEAF\SENNOSIDES\SENNOSIDES A AND B
  28. OXCARBAZEPINE [Concomitant]
     Active Substance: OXCARBAZEPINE
     Dosage: 600 MILLIGRAM
  29. OXCARBAZEPINE [Concomitant]
     Active Substance: OXCARBAZEPINE
     Dosage: 300 MILLIGRAM
  30. FLUOXETINE [Concomitant]
     Active Substance: FLUOXETINE HYDROCHLORIDE
     Dosage: 40 MG, UNK
  31. Gavilyte [Concomitant]
  32. LIDOCAINE [Concomitant]
     Active Substance: LIDOCAINE
     Dosage: 4 %, UNK
  33. ONDANSETRON [Concomitant]
     Active Substance: ONDANSETRON
  34. VENTOLIN [Concomitant]
     Active Substance: ALBUTEROL SULFATE
  35. CYMBALTA [Concomitant]
     Active Substance: DULOXETINE HYDROCHLORIDE
     Route: 065
  36. PROZAC [Concomitant]
     Active Substance: FLUOXETINE HYDROCHLORIDE
     Route: 065
  37. MUPIROCIN [Concomitant]
     Active Substance: MUPIROCIN
     Route: 065

REACTIONS (35)
  - Gastrointestinal disorder [Unknown]
  - Bipolar disorder [Recovering/Resolving]
  - Tardive dyskinesia [Unknown]
  - Condition aggravated [Not Recovered/Not Resolved]
  - Liver disorder [Not Recovered/Not Resolved]
  - Product dose omission issue [Recovered/Resolved]
  - Condition aggravated [Not Recovered/Not Resolved]
  - Fluid retention [Not Recovered/Not Resolved]
  - Product dose omission issue [Not Recovered/Not Resolved]
  - Condition aggravated [Not Recovered/Not Resolved]
  - Vertebral lesion [Not Recovered/Not Resolved]
  - Therapeutic response unexpected [Unknown]
  - Product dose omission issue [Unknown]
  - Muscle spasms [Unknown]
  - Speech disorder [Unknown]
  - Dysphonia [Unknown]
  - Throat irritation [Unknown]
  - Paranasal sinus hypersecretion [Unknown]
  - Migraine [Unknown]
  - Hepatic lesion [Unknown]
  - Flashback [Recovering/Resolving]
  - Abnormal behaviour [Unknown]
  - Anger [Unknown]
  - Irritability [Unknown]
  - Affective disorder [Recovering/Resolving]
  - Nonspecific reaction [Unknown]
  - Anxiety [Not Recovered/Not Resolved]
  - Swollen tongue [Unknown]
  - Confusional state [Not Recovered/Not Resolved]
  - Confusional state [Unknown]
  - Hallucination [Recovering/Resolving]
  - Peripheral swelling [Not Recovered/Not Resolved]
  - Constipation [Not Recovered/Not Resolved]
  - Constipation [Unknown]
  - Hallucination [Not Recovered/Not Resolved]

NARRATIVE: CASE EVENT DATE: 20170322
